FAERS Safety Report 25604250 (Version 3)
Quarter: 2025Q3

REPORT INFORMATION
  Report Type: Report from Study
  Country: US (occurrence: US)
  Receive Date: 20250725
  Receipt Date: 20250813
  Transmission Date: 20251021
  Serious: Yes (Other)
  Sender: ABBVIE
  Company Number: US-ABBVIE-6385459

PATIENT
  Age: 83 Year
  Sex: Female
  Weight: 51.709 kg

DRUGS (1)
  1. CREON [Suspect]
     Active Substance: PANCRELIPASE AMYLASE\PANCRELIPASE LIPASE\PANCRELIPASE PROTEASE
     Indication: Pancreatic failure
     Route: 048
     Dates: start: 2023

REACTIONS (8)
  - Breast cancer metastatic [Not Recovered/Not Resolved]
  - Muscle spasms [Unknown]
  - Stress [Unknown]
  - Neoplasm malignant [Unknown]
  - Nausea [Unknown]
  - Decreased appetite [Unknown]
  - Discomfort [Unknown]
  - Asthenia [Unknown]

NARRATIVE: CASE EVENT DATE: 20250101
